FAERS Safety Report 9640909 (Version 1)
Quarter: 2013Q4

REPORT INFORMATION
  Report Type: Report from Study
  Country: US (occurrence: US)
  Receive Date: 20131023
  Receipt Date: 20131023
  Transmission Date: 20140711
  Serious: Yes (Other)
  Sender: FDA-Public Use
  Company Number: US-ABBVIE-12P-163-1017595-00

PATIENT
  Age: 33 Year
  Sex: Female

DRUGS (1)
  1. LUPRON DEPOT [Suspect]
     Indication: ENDOMETRIOSIS
     Dates: start: 20120924, end: 201210

REACTIONS (5)
  - Tachycardia [Recovered/Resolved]
  - Feeling abnormal [Recovering/Resolving]
  - Amenorrhoea [Recovered/Resolved]
  - Chest discomfort [Recovering/Resolving]
  - Heart rate increased [Recovered/Resolved]
